FAERS Safety Report 11589442 (Version 1)
Quarter: 2015Q4

REPORT INFORMATION
  Report Type: Report from Study
  Country: EG (occurrence: EG)
  Receive Date: 20151002
  Receipt Date: 20151002
  Transmission Date: 20160304
  Serious: Yes (Death)
  Sender: FDA-Public Use
  Company Number: EG-SA-2015SA151361

PATIENT
  Age: 45 Year
  Sex: Female

DRUGS (1)
  1. LANTUS [Suspect]
     Active Substance: INSULIN GLARGINE
     Indication: TYPE 2 DIABETES MELLITUS
     Route: 058
     Dates: start: 20141029, end: 20150101

REACTIONS (1)
  - Diabetic hyperglycaemic coma [Fatal]

NARRATIVE: CASE EVENT DATE: 20150101
